FAERS Safety Report 25664463 (Version 2)
Quarter: 2025Q3

REPORT INFORMATION
  Report Type: Spontaneous
  Country: US (occurrence: US)
  Receive Date: 20250811
  Receipt Date: 20250909
  Transmission Date: 20251020
  Serious: Yes (Other)
  Sender: VERTEX
  Company Number: US-VERTEX PHARMACEUTICALS-2025-010831

PATIENT
  Sex: Female

DRUGS (7)
  1. ALYFTREK [Suspect]
     Active Substance: DEUTIVACAFTOR\TEZACAFTOR\VANZACAFTOR
     Indication: Cystic fibrosis
     Dosage: 02 TABLETS (10MG VANZACAFTOR/ 50 MG TEZACAFTOR/ 125 MG DEUTIVACAFTOR), QD
     Route: 048
     Dates: start: 202501, end: 2025
  2. CAYSTON [Suspect]
     Active Substance: AZTREONAM
     Indication: Cystic fibrosis lung
     Dosage: 75MG VIA NEBULIZER, TID (1 VIAL VIA ALTERA NEBULIZER 3 TIMES A DAY FOR 28 DAYS ON AND 28 DAYS OFF)
     Dates: start: 202505
  3. CAYSTON [Suspect]
     Active Substance: AZTREONAM
     Indication: Cystic fibrosis
  4. FASENRA [Suspect]
     Active Substance: BENRALIZUMAB
     Indication: Bronchiectasis
     Route: 058
     Dates: start: 202312
  5. FASENRA [Suspect]
     Active Substance: BENRALIZUMAB
     Indication: Asthma
  6. PULMOZYME [Concomitant]
     Active Substance: DORNASE ALFA
  7. TOBRAMYCIN [Concomitant]
     Active Substance: TOBRAMYCIN

REACTIONS (4)
  - Foot fracture [Not Recovered/Not Resolved]
  - Arthropathy [Not Recovered/Not Resolved]
  - Complication associated with device [Not Recovered/Not Resolved]
  - Gait inability [Unknown]

NARRATIVE: CASE EVENT DATE: 20250101
